FAERS Safety Report 12707967 (Version 2)
Quarter: 2016Q4

REPORT INFORMATION
  Report Type: Spontaneous
  Country: FR (occurrence: FR)
  Receive Date: 20160901
  Receipt Date: 20161228
  Transmission Date: 20170207
  Serious: Yes (Hospitalization)
  Sender: FDA-Public Use
  Company Number: FR-PFIZER INC-2016405816

PATIENT
  Age: 12 Year
  Sex: Female

DRUGS (20)
  1. FRAGMINE [Suspect]
     Active Substance: DALTEPARIN SODIUM
     Indication: ANTICOAGULANT THERAPY
     Dosage: 1 DF OF 2500 IU ANTI XA/0.2 ML, 1X/DAY
     Route: 058
     Dates: start: 20160618
  2. OMEPRAZOLE. [Concomitant]
     Active Substance: OMEPRAZOLE
     Dosage: UNK
  3. PHOSPHONEUROS [Concomitant]
     Active Substance: CALCIUM PHOSPHATE, DIBASIC, ANHYDROUS\MAGNESIUM GLYCEROPHOSPHATE\PHOSPHORIC ACID\SODIUM PHOSPHATE, DIBASIC
     Dosage: UNK
  4. PROPOFOL LIPURO [Suspect]
     Active Substance: PROPOFOL
     Indication: ANAESTHESIA
     Dosage: 100 MG AND 50 MG, SINGLE
     Route: 008
     Dates: start: 20160616, end: 20160616
  5. KETAMINE RENAUDIN [Suspect]
     Active Substance: KETAMINE
     Indication: ANAESTHESIA
     Dosage: 10 MG, 1X/DAY
     Route: 008
     Dates: start: 20160616, end: 20160616
  6. PARACETAMOL MACOPHARMA [Suspect]
     Active Substance: ACETAMINOPHEN
     Indication: ANALGESIC THERAPY
     Dosage: 15 MG/KG, 4X/DAY EVERY 6 HOURS
     Route: 042
     Dates: start: 20160616, end: 20160620
  7. PROFENID [Suspect]
     Active Substance: KETOPROFEN
     Indication: POSTOPERATIVE ANALGESIA
     Dosage: 1 MG/KG, SINGLE
     Route: 042
     Dates: start: 20160618, end: 20160618
  8. ONDANSETRON ACCORD [Suspect]
     Active Substance: ONDANSETRON
     Indication: ANTIEMETIC SUPPORTIVE CARE
     Dosage: 0.1 MG/KG, 3X/DAY EVERY 8 HOURS
     Route: 042
     Dates: start: 20160616, end: 20160620
  9. CEFAZOLINE MYLAN [Suspect]
     Active Substance: CEFAZOLIN SODIUM
     Indication: ANTIBIOTIC PROPHYLAXIS
     Dosage: 12.5 MG/KG, 3X/DAY EVERY 8 HOURS
     Route: 042
     Dates: start: 20160616, end: 20160617
  10. DIFFU K [Concomitant]
     Active Substance: POTASSIUM CHLORIDE
     Dosage: UNK
  11. NALBUPHINE [Suspect]
     Active Substance: NALBUPHINE
     Indication: POSTOPERATIVE ANALGESIA
     Dosage: 7 MG, SINGLE
     Route: 042
     Dates: start: 20160616, end: 20160616
  12. EUPANTOL [Concomitant]
     Active Substance: PANTOPRAZOLE SODIUM
     Dosage: UNK
  13. CALCIDOSE VITAMINE D [Concomitant]
     Active Substance: CALCIUM\CHOLECALCIFEROL
     Dosage: UNK
  14. CHIROCAINE [Suspect]
     Active Substance: LEVOBUPIVACAINE HYDROCHLORIDE
     Indication: ANAESTHESIA
     Dosage: 7.5 MG + 10 MG + 15 MG + 0.05 MG, EVERY HOURS
     Route: 008
     Dates: start: 20160616, end: 20160717
  15. UVEDOSE [Concomitant]
     Active Substance: CHOLECALCIFEROL
  16. SUFENTANIL [Suspect]
     Active Substance: SUFENTANIL
     Indication: ANAESTHESIA
     Dosage: 10 UG + 5 UG + 5 UG, SINGLE
     Route: 008
     Dates: start: 20160616, end: 20160616
  17. ELUDRIL /02860401/ [Concomitant]
     Active Substance: CHLORHEXIDINE GLUCONATE\CHLOROBUTANOL
     Dosage: UNK
  18. FUNGIZONE [Concomitant]
     Active Substance: AMPHOTERICIN B
     Dosage: UNK
  19. DROPERIDOL AGUETTANT [Suspect]
     Active Substance: DROPERIDOL
     Indication: PROPHYLAXIS OF NAUSEA AND VOMITING
     Dosage: 1 MG, 4X/DAY EVERY 6 HOURS
     Route: 042
     Dates: start: 20160617, end: 20160620
  20. MORPHINE [Concomitant]
     Active Substance: MORPHINE
     Dosage: UNK

REACTIONS (1)
  - Pancreatitis acute [Recovered/Resolved]

NARRATIVE: CASE EVENT DATE: 20160619
